FAERS Safety Report 6445083-2 (Version None)
Quarter: 2009Q4

REPORT INFORMATION
  Report Type: 
  Country: None (occurrence: None)
  Receive Date: 20091118
  Receipt Date: 20091106
  Transmission Date: 20100525
  Serious: Yes (Hospitalization, Disabling, Other)
  Sender: FDA-Public Use
  Company Number: AU-PFIZER INC-2009283977

PATIENT
  Age: 56 Year
  Sex: Female
  Weight: 58 kg

DRUGS (5)
  1. CHAMPIX [Suspect]
     Indication: SMOKING CESSATION THERAPY
     Dosage: UNK
     Route: 048
     Dates: start: 20090923, end: 20091001
  2. MOCLOBEMIDE [Concomitant]
     Indication: MENTAL DISORDER
  3. CYMBALTA [Concomitant]
     Indication: MENTAL DISORDER
     Dosage: 60 MG, 1X/DAY
     Route: 048
  4. TEMAZE [Concomitant]
     Indication: SLEEP DISORDER
     Dosage: 10 MG, 1X/DAY NOCTE
     Route: 048
  5. TOPAMAX [Concomitant]
     Dosage: 200 MG, 2X/DAY
     Route: 048

REACTIONS (9)
  - ABNORMAL DREAMS [None]
  - COMA [None]
  - DECREASED APPETITE [None]
  - DEPRESSION [None]
  - DRY MOUTH [None]
  - FATIGUE [None]
  - HALLUCINATION [None]
  - INSOMNIA [None]
  - PSYCHOTIC DISORDER [None]
